FAERS Safety Report 8356598-4 (Version None)
Quarter: 2012Q2

REPORT INFORMATION
  Report Type: 
  Country: None (occurrence: None)
  Receive Date: 20120514
  Receipt Date: 20120509
  Transmission Date: 20120825
  Serious: Yes (Other)
  Sender: FDA-Public Use
  Company Number: PHHY2012NZ022799

PATIENT
  Sex: Female

DRUGS (1)
  1. ZOLEDRONOC ACID [Suspect]
     Dosage: UNK UKN, UNK
     Route: 042
     Dates: start: 20100701

REACTIONS (7)
  - ORAL DISORDER [None]
  - EXPOSED BONE IN JAW [None]
  - MOUTH ULCERATION [None]
  - ERYTHEMA [None]
  - TENDERNESS [None]
  - SOFT TISSUE INFECTION [None]
  - OSTEONECROSIS OF JAW [None]
